FAERS Safety Report 6572061-5 (Version None)
Quarter: 2010Q1

REPORT INFORMATION
  Report Type: 
  Country: None (occurrence: None)
  Receive Date: 20100205
  Receipt Date: 20100122
  Transmission Date: 20100710
  Serious: Yes (Other)
  Sender: FDA-Public Use
  Company Number: GB-WATSON-2010-01099

PATIENT
  Age: 45 Year
  Sex: Female

DRUGS (4)
  1. CODRIX (WATSON LABORATORIES) [Suspect]
     Indication: PAIN
     Dosage: UNK
  2. FENTANYL-50 [Suspect]
     Indication: SEDATION
     Dosage: 50 MCG, TOTAL
  3. CITANEST WITH OCTAPRESSIN [Suspect]
     Indication: DRUG USE FOR UNKNOWN INDICATION
     Dosage: 10 1/2 ML, TOTAL
  4. CITANEST WITH OCTAPRESSIN [Suspect]
     Dosage: 2 1/2 ML, TOTAL

REACTIONS (1)
  - METHAEMOGLOBINAEMIA [None]
